FAERS Safety Report 7687543-2 (Version None)
Quarter: 2011Q3

REPORT INFORMATION
  Report Type: 
  Country: None (occurrence: None)
  Receive Date: 20110817
  Receipt Date: 20110808
  Transmission Date: 20111222
  Serious: No
  Sender: FDA-Public Use
  Company Number: US-BIOGENIDEC-2011BI030113

PATIENT
  Sex: Female

DRUGS (3)
  1. AVONEX [Suspect]
     Indication: MULTIPLE SCLEROSIS
     Route: 030
     Dates: start: 20030101
  2. AMITRIPTYLINE HCL [Concomitant]
     Indication: NEURALGIA
     Dates: start: 19870101
  3. AVONEX [Suspect]
     Route: 030
     Dates: start: 19980601, end: 20030101

REACTIONS (2)
  - INSOMNIA [None]
  - HYPERTENSION [None]
